FAERS Safety Report 24775392 (Version 1)
Quarter: 2024Q4

REPORT INFORMATION
  Report Type: Spontaneous
  Country: FR (occurrence: FR)
  Receive Date: 20241226
  Receipt Date: 20241226
  Transmission Date: 20250115
  Serious: Yes (Hospitalization, Other)
  Sender: BAXTER
  Company Number: None

PATIENT
  Age: 15 Year
  Sex: Male
  Weight: 97 kg

DRUGS (2)
  1. PROPOFOL [Suspect]
     Active Substance: PROPOFOL
     Indication: Sedation
     Dosage: (DURATION: 6 DAYS) 150 MG, 1 HOURS
     Route: 042
     Dates: start: 20241009, end: 20241015
  2. SEVOFLURANE [Concomitant]
     Active Substance: SEVOFLURANE
     Indication: Sedation
     Dosage: (DURATION: 1 DAYS) 7.5 ML, 1 HOURS
     Dates: start: 20241015, end: 20241016

REACTIONS (4)
  - Pericardial effusion [Recovering/Resolving]
  - Blood creatine phosphokinase increased [Recovered/Resolved]
  - Troponin increased [Recovered/Resolved]
  - Hyperthermia [Recovered/Resolved]

NARRATIVE: CASE EVENT DATE: 20241011
